FAERS Safety Report 24883998 (Version 1)
Quarter: 2025Q1

REPORT INFORMATION
  Report Type: Spontaneous
  Country: US (occurrence: US)
  Receive Date: 20250124
  Receipt Date: 20250124
  Transmission Date: 20250409
  Serious: Yes (Other)
  Sender: TEVA
  Company Number: US-TEVA-VS-3287407

PATIENT
  Age: 69 Year
  Sex: Female
  Weight: 39.916 kg

DRUGS (3)
  1. CLONAZEPAM [Suspect]
     Active Substance: CLONAZEPAM
     Indication: Anxiety
     Route: 048
     Dates: start: 2010
  2. KLONOPIN [Suspect]
     Active Substance: CLONAZEPAM
     Indication: Anxiety
     Route: 065
  3. CLONAZEPAM [Suspect]
     Active Substance: CLONAZEPAM
     Indication: Anxiety
     Route: 065

REACTIONS (17)
  - Autonomic neuropathy [Unknown]
  - Illness [Unknown]
  - Autonomic nervous system imbalance [Unknown]
  - Feeling abnormal [Unknown]
  - Dizziness [Unknown]
  - Migraine [Unknown]
  - Adverse event [Unknown]
  - Gait disturbance [Unknown]
  - Hypotension [Unknown]
  - Product availability issue [Unknown]
  - Product use in unapproved indication [Unknown]
  - Drug ineffective [Unknown]
  - Gait disturbance [Unknown]
  - Vision blurred [Unknown]
  - Decreased appetite [Unknown]
  - Salt craving [Unknown]
  - Loss of personal independence in daily activities [Unknown]

NARRATIVE: CASE EVENT DATE: 20100101
